FAERS Safety Report 5526289-3 (Version None)
Quarter: 2007Q4

REPORT INFORMATION
  Report Type: 
  Country: None (occurrence: None)
  Receive Date: 20071127
  Receipt Date: 20071115
  Transmission Date: 20080405
  Serious: Yes (Hospitalization, Disabling)
  Sender: FDA-Public Use
  Company Number: JP-JNJFOC-20060500002

PATIENT
  Sex: Female
  Weight: 65 kg

DRUGS (23)
  1. REMICADE [Suspect]
     Route: 042
  2. REMICADE [Suspect]
     Route: 042
  3. REMICADE [Suspect]
     Route: 042
  4. REMICADE [Suspect]
     Route: 042
  5. REMICADE [Suspect]
     Route: 042
  6. REMICADE [Suspect]
     Route: 042
  7. REMICADE [Suspect]
     Route: 042
  8. REMICADE [Suspect]
     Indication: RHEUMATOID ARTHRITIS
     Route: 042
  9. RHEUMATREX [Suspect]
     Route: 048
  10. RHEUMATREX [Suspect]
     Route: 048
  11. RHEUMATREX [Suspect]
     Route: 048
  12. RHEUMATREX [Suspect]
     Indication: RHEUMATOID ARTHRITIS
     Route: 048
  13. PREDONINE [Suspect]
     Indication: RHEUMATOID ARTHRITIS
     Route: 048
  14. AZULFIDINE EN-TABS [Suspect]
     Indication: RHEUMATOID ARTHRITIS
     Route: 048
  15. THEO-DUR [Suspect]
     Indication: ASTHMA
     Route: 048
  16. ADALAT [Suspect]
     Indication: HYPERTENSION
     Route: 048
  17. RISEDRONATE SODIUM [Suspect]
     Indication: OSTEOPOROSIS
     Route: 048
  18. OMEPRAL [Suspect]
     Indication: GASTRIC ULCER
     Route: 048
  19. LIMETHASON [Concomitant]
     Indication: RHEUMATOID ARTHRITIS
  20. SHIOSOL [Concomitant]
     Indication: RHEUMATOID ARTHRITIS
     Route: 030
  21. SELBEX [Concomitant]
     Dosage: 4 CAPS/DAY
     Route: 048
  22. ALOSENN [Concomitant]
     Route: 048
  23. KEISHI-KA-JUTSU-BU-TO [Concomitant]
     Route: 048

REACTIONS (1)
  - VERTEBRAL ABSCESS [None]
